FAERS Safety Report 5619402-0 (Version None)
Quarter: 2008Q1

REPORT INFORMATION
  Report Type: 
  Country: None (occurrence: None)
  Receive Date: 20080114
  Receipt Date: 20070803
  Transmission Date: 20080703
  Serious: Yes (Hospitalization)
  Sender: FDA-Public Use
  Company Number: 2007BH006811

PATIENT
  Age: 84 Year
  Sex: Female
  Weight: 60.1 kg

DRUGS (7)
  1. VANCOMYCIN HCL [Suspect]
     Indication: CELLULITIS
     Dosage: 1 GM;EVERY 36 HOURS; IV ; 1100 MG;EVERY 36 HOURS;IV ; 1 GM;EVERY 5 DY;IV
     Route: 042
     Dates: start: 20070726, end: 20070728
  2. VANCOMYCIN HCL [Suspect]
     Indication: STAPHYLOCOCCAL INFECTION
     Dosage: 1 GM;EVERY 36 HOURS; IV ; 1100 MG;EVERY 36 HOURS;IV ; 1 GM;EVERY 5 DY;IV
     Route: 042
     Dates: start: 20070726, end: 20070728
  3. VANCOMYCIN HCL [Suspect]
     Indication: CELLULITIS
     Dosage: 1 GM;EVERY 36 HOURS; IV ; 1100 MG;EVERY 36 HOURS;IV ; 1 GM;EVERY 5 DY;IV
     Route: 042
     Dates: start: 20070728, end: 20070806
  4. VANCOMYCIN HCL [Suspect]
     Indication: STAPHYLOCOCCAL INFECTION
     Dosage: 1 GM;EVERY 36 HOURS; IV ; 1100 MG;EVERY 36 HOURS;IV ; 1 GM;EVERY 5 DY;IV
     Route: 042
     Dates: start: 20070728, end: 20070806
  5. VANCOMYCIN HCL [Suspect]
     Indication: CELLULITIS
     Dosage: 1 GM;EVERY 36 HOURS; IV ; 1100 MG;EVERY 36 HOURS;IV ; 1 GM;EVERY 5 DY;IV
     Route: 042
     Dates: start: 20070806
  6. VANCOMYCIN HCL [Suspect]
     Indication: STAPHYLOCOCCAL INFECTION
     Dosage: 1 GM;EVERY 36 HOURS; IV ; 1100 MG;EVERY 36 HOURS;IV ; 1 GM;EVERY 5 DY;IV
     Route: 042
     Dates: start: 20070806
  7. LASIX [Concomitant]

REACTIONS (1)
  - RENAL FAILURE ACUTE [None]
